FAERS Safety Report 7647000-6 (Version None)
Quarter: 2011Q3

REPORT INFORMATION
  Report Type: 
  Country: None (occurrence: None)
  Receive Date: 20110801
  Receipt Date: 20110728
  Transmission Date: 20111222
  Serious: Yes (Other)
  Sender: FDA-Public Use
  Company Number: CA-ABBOTT-11P-028-0837493-00

PATIENT
  Sex: Male
  Weight: 81.72 kg

DRUGS (1)
  1. LUPRON DEPOT [Suspect]
     Indication: PROSTATE CANCER
     Dosage: 3 MONTHS DEPOT
     Route: 030

REACTIONS (4)
  - ABDOMINAL PAIN LOWER [None]
  - LYMPHADENOPATHY [None]
  - RETROPERITONEAL LYMPHADENOPATHY [None]
  - GASTROINTESTINAL DISORDER [None]
